FAERS Safety Report 7105815-7 (Version None)
Quarter: 2010Q4

REPORT INFORMATION
  Report Type: 
  Country: None (occurrence: None)
  Receive Date: 20101110
  Receipt Date: 20101028
  Transmission Date: 20110411
  Serious: Yes (Hospitalization)
  Sender: FDA-Public Use
  Company Number: UTC-001852

PATIENT
  Age: 45 Year
  Sex: Female
  Weight: 56.4 kg

DRUGS (2)
  1. TYVASO [Suspect]
     Indication: PULMONARY HYPERTENSION
     Dosage: (18 MCG), INHALATION
     Route: 055
     Dates: start: 20101013
  2. LETARIS (AMBRISENTAN) [Concomitant]

REACTIONS (3)
  - CHEST PAIN [None]
  - COUGH [None]
  - DYSPHONIA [None]
